FAERS Safety Report 7202936-5 (Version None)
Quarter: 2010Q4

REPORT INFORMATION
  Report Type: 
  Country: None (occurrence: None)
  Receive Date: 20101229
  Receipt Date: 20101105
  Transmission Date: 20110411
  Serious: Yes (Death, Other)
  Sender: FDA-Public Use
  Company Number: PHHY2010JP75043

PATIENT
  Sex: Male

DRUGS (3)
  1. SANDOSTATIN [Suspect]
     Indication: PANCREATIC CARCINOMA
     Route: 058
  2. ETOPOSIDE [Concomitant]
  3. CISPLATIN [Concomitant]

REACTIONS (5)
  - DEATH [None]
  - HEPATIC FAILURE [None]
  - HEPATIC NEOPLASM [None]
  - MALIGNANT NEOPLASM PROGRESSION [None]
  - RENAL FAILURE [None]
